FAERS Safety Report 9630551 (Version 3)
Quarter: 2013Q4

REPORT INFORMATION
  Report Type: Spontaneous
  Country: US (occurrence: US)
  Receive Date: 20131018
  Receipt Date: 20131209
  Transmission Date: 20140711
  Serious: No
  Sender: FDA-Public Use
  Company Number: PHEH2013US021307

PATIENT
  Sex: Male

DRUGS (3)
  1. ILARIS [Suspect]
     Dosage: 180 MG, EVERY 8 WEEKS
  2. NADOLOL [Concomitant]
  3. VITAMIN D [Concomitant]

REACTIONS (2)
  - Infection [Unknown]
  - Pharyngitis streptococcal [Unknown]
